FAERS Safety Report 6721257-8 (Version None)
Quarter: 2010Q2

REPORT INFORMATION
  Report Type: 
  Country: None (occurrence: None)
  Receive Date: 20100510
  Receipt Date: 20100428
  Transmission Date: 20101027
  Serious: Yes (Death)
  Sender: FDA-Public Use
  Company Number: 2010AC000353

PATIENT
  Sex: Female

DRUGS (1)
  1. DIGOXIN [Suspect]
     Dosage: PO
     Route: 048
     Dates: start: 20060101, end: 20071001

REACTIONS (4)
  - ECONOMIC PROBLEM [None]
  - INJURY [None]
  - PAIN [None]
  - UNEVALUABLE EVENT [None]
